FAERS Safety Report 17294200 (Version 1)
Quarter: 2020Q1

REPORT INFORMATION
  Report Type: Spontaneous
  Country: US (occurrence: US)
  Receive Date: 20200120
  Receipt Date: 20200120
  Transmission Date: 20200409
  Serious: Yes (Other)
  Sender: FDA-Public Use
  Company Number: None

PATIENT
  Age: 64 Year
  Sex: Female
  Weight: 60.75 kg

DRUGS (4)
  1. GREEN TEA EXTRACT [Concomitant]
  2. NP THYROID [Suspect]
     Active Substance: LEVOTHYROXINE\LIOTHYRONINE
     Indication: HYPOTHYROIDISM
     Dosage: ?          QUANTITY:1 TABLET(S);?
     Route: 048
     Dates: start: 20190303, end: 20191015
  3. VITAMIN D [Concomitant]
     Active Substance: VITAMIN D NOS
  4. LYSINE [Concomitant]
     Active Substance: LYSINE

REACTIONS (5)
  - Dysphonia [None]
  - Product odour abnormal [None]
  - Swollen tongue [None]
  - Product taste abnormal [None]
  - Product substitution issue [None]

NARRATIVE: CASE EVENT DATE: 20190925
